FAERS Safety Report 9866038 (Version 2)
Quarter: 2014Q1

REPORT INFORMATION
  Report Type: Spontaneous
  Country: US (occurrence: US)
  Receive Date: 20140203
  Receipt Date: 20140203
  Transmission Date: 20141002
  Serious: No
  Sender: FDA-Public Use
  Company Number: US-ALLERGAN-1314676US

PATIENT
  Age: 69 Year
  Sex: Female

DRUGS (5)
  1. RESTASIS [Suspect]
     Indication: DRY EYE
     Dosage: 2 GTT, BID
     Route: 047
     Dates: start: 2007
  2. RESTASIS [Suspect]
     Dosage: UNK
  3. ADVAIR [Concomitant]
     Indication: ASTHMA
  4. THYROID MEDICINE NOS [Concomitant]
     Indication: HYPOTHYROIDISM
  5. PEPCID                             /00305201/ [Concomitant]
     Indication: PRODUCT USED FOR UNKNOWN INDICATION
     Dosage: 40 MG, UNK

REACTIONS (2)
  - Corneal abrasion [Recovered/Resolved]
  - Eye pain [Recovered/Resolved]
